FAERS Safety Report 21471336 (Version 1)
Quarter: 2022Q4

REPORT INFORMATION
  Report Type: Spontaneous
  Country: US (occurrence: None)
  Receive Date: 20221017
  Receipt Date: 20221017
  Transmission Date: 20230112
  Serious: Yes (unspecified)
  Sender: FDA-Public Use
  Company Number: None

PATIENT
  Age: 51 Year
  Sex: Female
  Weight: 80.55 kg

DRUGS (8)
  1. OMEPRAZOLE [Suspect]
     Active Substance: OMEPRAZOLE
     Indication: Gastric disorder
     Route: 048
     Dates: start: 20220907, end: 20220930
  2. OXYTOCIN [Concomitant]
     Active Substance: OXYTOCIN
  3. GABAPENTIN [Concomitant]
     Active Substance: GABAPENTIN
  4. hydrochlloroth [Concomitant]
  5. ATORVASTATIN [Concomitant]
     Active Substance: ATORVASTATIN
  6. lasartan [Concomitant]
  7. slbuteroland [Concomitant]
  8. METHOCARBAMOL [Concomitant]
     Active Substance: METHOCARBAMOL

REACTIONS (5)
  - Renal pain [None]
  - Bladder dysfunction [None]
  - Culture positive [None]
  - Escherichia infection [None]
  - Product contamination microbial [None]

NARRATIVE: CASE EVENT DATE: 20220910
